FAERS Safety Report 6834021-6 (Version None)
Quarter: 2010Q3

REPORT INFORMATION
  Report Type: 
  Country: None (occurrence: None)
  Receive Date: 20100712
  Receipt Date: 20070409
  Transmission Date: 20110219
  Serious: No
  Sender: FDA-Public Use
  Company Number: US-PFIZER INC-2007029065

PATIENT
  Sex: Female
  Weight: 62.6 kg

DRUGS (6)
  1. CHANTIX [Suspect]
     Indication: SMOKING CESSATION THERAPY
     Dates: start: 20070331
  2. RANITIDINE [Concomitant]
  3. PREMARIN [Concomitant]
  4. QUINAPRIL HYDROCHLORIDE [Concomitant]
  5. SYNTHROID [Concomitant]
  6. VITAMINS [Concomitant]

REACTIONS (1)
  - ABDOMINAL PAIN UPPER [None]
